FAERS Safety Report 5656085-8 (Version None)
Quarter: 2008Q1

REPORT INFORMATION
  Report Type: 
  Country: None (occurrence: None)
  Receive Date: 20080305
  Receipt Date: 20080219
  Transmission Date: 20080703
  Serious: Yes (Other)
  Sender: FDA-Public Use
  Company Number: 2008US000577

PATIENT
  Sex: Female

DRUGS (1)
  1. VESLCARE(SOLIFENACIN) TABLET, UNKNOWN [Suspect]
     Indication: URINARY INCONTINENCE
     Dosage: ORAL
     Route: 048
     Dates: start: 20070101, end: 20070101

REACTIONS (1)
  - THROMBOSIS [None]
